FAERS Safety Report 7476571-8 (Version None)
Quarter: 2011Q2

REPORT INFORMATION
  Report Type: 
  Country: None (occurrence: None)
  Receive Date: 20110510
  Receipt Date: 20110510
  Transmission Date: 20111010
  Serious: Yes (Disabling)
  Sender: FDA-Public Use
  Company Number: None

PATIENT
  Sex: Female
  Weight: 55.6 kg

DRUGS (12)
  1. LOVENOX [Suspect]
     Indication: DEEP VEIN THROMBOSIS
     Dosage: 60MG TWICE DAILY SQ
     Route: 058
     Dates: start: 20110322, end: 20110326
  2. ATIVAN [Concomitant]
  3. DOCUSATE SODIUM (COLACE) [Concomitant]
  4. COMPAZINE [Concomitant]
  5. FOLIC ACID [Suspect]
  6. DOXORUBICIN HCL [Concomitant]
  7. ZOFRAN [Concomitant]
  8. APREPITANT [Suspect]
  9. VALTREX [Concomitant]
  10. DECADRON [Concomitant]
  11. CYCLOPHOSPHAMIDE [Concomitant]
  12. VITAMIN D [Suspect]

REACTIONS (2)
  - LIVER DISORDER [None]
  - ALANINE AMINOTRANSFERASE INCREASED [None]
